FAERS Safety Report 5441543-1 (Version None)
Quarter: 2007Q3

REPORT INFORMATION
  Report Type: 
  Country: None (occurrence: None)
  Receive Date: 20070904
  Receipt Date: 20070831
  Transmission Date: 20080115
  Serious: Yes (Hospitalization)
  Sender: FDA-Public Use
  Company Number: PT-BRISTOL-MYERS SQUIBB COMPANY-13894274

PATIENT
  Age: 10 Year
  Sex: Male

DRUGS (3)
  1. PROCEF [Suspect]
     Indication: RESPIRATORY TRACT INFECTION
     Route: 048
     Dates: start: 20050301
  2. AMOXICILLIN TRIHYDRATE [Suspect]
     Indication: RESPIRATORY TRACT INFECTION
     Dosage: FORMULAION: AMOXICILLIN TRIHYDRATE FILM COATED TABLET; DOSE: 875MG+125MG
     Route: 048
     Dates: start: 20050301
  3. CLAVULANIC ACID [Suspect]
     Indication: RESPIRATORY TRACT INFECTION
     Dosage: FORMULATION: CLAVULANATE POTASSIUM FILM COATED TABLET; DOSE: 875MG+125MG
     Route: 048
     Dates: start: 20050301

REACTIONS (4)
  - ERYTHEMA [None]
  - PRURITUS [None]
  - RASH PAPULAR [None]
  - SKIN EXFOLIATION [None]
